FAERS Safety Report 12684263 (Version 5)
Quarter: 2018Q1

REPORT INFORMATION
  Report Type: Spontaneous
  Country: US (occurrence: US)
  Receive Date: 20160825
  Receipt Date: 20180111
  Transmission Date: 20180508
  Serious: No
  Sender: FDA-Public Use
  Company Number: US-PFIZER INC-2016273207

PATIENT
  Age: 74 Year
  Sex: Female
  Weight: 63.3 kg

DRUGS (26)
  1. FIORICET [Concomitant]
     Active Substance: ACETAMINOPHEN\BUTALBITAL\CAFFEINE
     Dosage: 50/325/40, AS NEEDED (OR EVERY 6 HOURS)
     Route: 048
  2. LIDODERM [Concomitant]
     Active Substance: LIDOCAINE
     Dosage: 5 %, 1X/DAY (ON FOR 12 HOURS AFTER APPLYING AND THEN OFF FOR 21 HOURS)
     Route: 003
  3. MAGNESIUM GLUCONATE [Concomitant]
     Active Substance: MAGNESIUM GLUCONATE
     Dosage: 2000 MG, 3X/DAY (27 MG OF ELEM)
     Route: 048
  4. CRESTOR [Concomitant]
     Active Substance: ROSUVASTATIN CALCIUM
     Dosage: 5 MG, 2X/WEEK
     Route: 048
  5. LISINOPRIL. [Concomitant]
     Active Substance: LISINOPRIL
     Dosage: UNK
  6. RAPAMUNE [Suspect]
     Active Substance: SIROLIMUS
     Dosage: 0.5 MG, DAILY (TAKE 0.5 MG TAB DAILY)
  7. PROTONIX [Concomitant]
     Active Substance: PANTOPRAZOLE SODIUM
     Dosage: 40 MG, 2X/DAY
     Route: 048
  8. RAPAMUNE [Suspect]
     Active Substance: SIROLIMUS
     Dosage: 2 MG, DAILY (TAKE 1 MG TAB - 2 TABS DAILY)
  9. ECOTRIN [Concomitant]
     Active Substance: ASPIRIN
     Dosage: 81 MG, 1X/DAY
     Route: 048
  10. FIORICET [Concomitant]
     Active Substance: ACETAMINOPHEN\BUTALBITAL\CAFFEINE
     Dosage: 1 DF, UNK
     Route: 048
  11. OSCAL/D [Concomitant]
     Dosage: UNK UNK, DAILY (1,250 MG/ 200 UNIT TABLET)
     Route: 048
  12. HUMALOG [Concomitant]
     Active Substance: INSULIN LISPRO
     Dosage: 2 IU, UNK
     Route: 058
  13. DELTASONE [Concomitant]
     Active Substance: PREDNISONE
     Dosage: 3 MG, DAILY (TAKE 3 MG TOTAL (3 TABLETS) DAILY WITH BREAKFAST)
     Route: 048
  14. RAPAMUNE [Suspect]
     Active Substance: SIROLIMUS
     Indication: HEART TRANSPLANT REJECTION
     Dosage: 2 MG, DAILY
     Route: 048
     Dates: start: 20160622
  15. FLEXERIL [Concomitant]
     Active Substance: CYCLOBENZAPRINE HYDROCHLORIDE
     Indication: MUSCLE SPASMS
     Dosage: 5 MG, AS NEEDED (NIGHTLY)
     Route: 048
  16. LIDODERM [Concomitant]
     Active Substance: LIDOCAINE
     Dosage: 5 %, UNK
     Route: 061
  17. VITAMIN C WITH ROSE HIPS [Concomitant]
     Dosage: 1000 MG, 1X/DAY
     Route: 048
  18. RAPAMUNE [Suspect]
     Active Substance: SIROLIMUS
     Indication: IMMUNE SYSTEM DISORDER
     Dosage: 2 MG, 1X/DAY
     Dates: start: 20160514
  19. XANAX [Concomitant]
     Active Substance: ALPRAZOLAM
     Indication: SLEEP DISORDER
     Dosage: 0.5 MG, AS NEEDED
     Route: 048
  20. CELEXA [Concomitant]
     Active Substance: CITALOPRAM HYDROBROMIDE
     Dosage: 20 MG, DAILY
     Route: 048
  21. HUMALOG [Concomitant]
     Active Substance: INSULIN LISPRO
     Dosage: 2 DF, 3X/DAY (2 UNITS INTO SKIN 3 TIMES DAILY 30 MINS BEFORE MEALS)
     Route: 058
  22. RAPAMUNE [Suspect]
     Active Substance: SIROLIMUS
     Indication: HEART TRANSPLANT
     Dosage: 2 MG, DAILY (EVERY MORNING)
     Route: 048
     Dates: start: 20161122
  23. FOLVITE [Concomitant]
     Active Substance: FOLIC ACID
     Dosage: 1 MG, 1X/DAY
     Route: 048
  24. VAGIFEM [Concomitant]
     Active Substance: ESTRADIOL
     Dosage: 25 MG, 2X/WEEK
     Route: 067
  25. ZETIA [Concomitant]
     Active Substance: EZETIMIBE
     Dosage: UNK
  26. CELLCEPT [Concomitant]
     Active Substance: MYCOPHENOLATE MOFETIL\MYCOPHENOLATE MOFETIL HYDROCHLORIDE
     Dosage: 500 MG, 2X/DAY
     Route: 048

REACTIONS (4)
  - Mouth ulceration [Unknown]
  - Product use in unapproved indication [Unknown]
  - Nasopharyngitis [Unknown]
  - Swelling face [Recovering/Resolving]
